FAERS Safety Report 25926810 (Version 1)
Quarter: 2025Q4

REPORT INFORMATION
  Report Type: Spontaneous
  Country: CA (occurrence: CA)
  Receive Date: 20251015
  Receipt Date: 20251015
  Transmission Date: 20260117
  Serious: Yes (Other)
  Sender: PFIZER
  Company Number: CA-PFIZER INC-202500203209

PATIENT
  Age: 28 Year
  Sex: Male

DRUGS (1)
  1. SOLU-MEDROL [Suspect]
     Active Substance: METHYLPREDNISOLONE SODIUM SUCCINATE
     Indication: Multiple sclerosis
     Dosage: 125 MG/ML

REACTIONS (5)
  - Dizziness [Unknown]
  - Feeling hot [Unknown]
  - Nausea [Unknown]
  - Visual impairment [Unknown]
  - Off label use [Unknown]
